FAERS Safety Report 18547286 (Version 1)
Quarter: 2020Q4

REPORT INFORMATION
  Report Type: Spontaneous
  Country: IT (occurrence: IT)
  Receive Date: 20201125
  Receipt Date: 20201125
  Transmission Date: 20210114
  Serious: Yes (Life-Threatening, Hospitalization)
  Sender: FDA-Public Use
  Company Number: IT-ELI_LILLY_AND_COMPANY-IT202011008908

PATIENT
  Age: 83 Year
  Sex: Female

DRUGS (8)
  1. CITALOPRAM [Concomitant]
     Active Substance: CITALOPRAM HYDROBROMIDE
  2. NATECAL [Concomitant]
     Active Substance: CALCIUM CARBONATE\CHOLECALCIFEROL
  3. FOLIC ACID. [Concomitant]
     Active Substance: FOLIC ACID
  4. DIBASE [Concomitant]
     Active Substance: CHOLECALCIFEROL
  5. SICCAFLUID [Concomitant]
     Indication: EYE LUBRICATION THERAPY
  6. DELTACORTENE [Concomitant]
     Active Substance: PREDNISONE
  7. TARDYFER [Concomitant]
     Active Substance: FERROUS SULFATE
  8. FORSTEO [Suspect]
     Active Substance: TERIPARATIDE
     Indication: OSTEOPOROSIS
     Dosage: UNK, UNKNOWN
     Route: 065
     Dates: start: 20181129, end: 20201109

REACTIONS (4)
  - Blood pressure decreased [Unknown]
  - Dyspnoea [Unknown]
  - Uterine infection [Unknown]
  - Haemorrhage [Unknown]

NARRATIVE: CASE EVENT DATE: 2020
